FAERS Safety Report 8660603 (Version 2)
Quarter: 2013Q4

REPORT INFORMATION
  Report Type: Spontaneous
  Country: BR (occurrence: BR)
  Receive Date: 20120711
  Receipt Date: 20131031
  Transmission Date: 20140711
  Serious: Yes (Death)
  Sender: FDA-Public Use
  Company Number: BR-009507513-1207BRA001103

PATIENT
  Age: 75 Year
  Sex: Female

DRUGS (1)
  1. ZETSIM [Suspect]
     Dosage: UNK
     Dates: end: 20120625

REACTIONS (1)
  - Death [Fatal]
